FAERS Safety Report 21140130 (Version 1)
Quarter: 2022Q3

REPORT INFORMATION
  Report Type: Other
  Country: IS (occurrence: None)
  Receive Date: 20220728
  Receipt Date: 20220728
  Transmission Date: 20221027
  Serious: Yes (Death, Hospitalization, Other)
  Sender: FDA-Public Use
  Company Number: IS-Saptalis Pharmaceuticals,LLC-000289

PATIENT
  Sex: Female

DRUGS (12)
  1. LEVOCARNITINE [Suspect]
     Active Substance: LEVOCARNITINE
     Indication: Methylmalonic aciduria
     Dosage: 100 ML/KG/DAY
  2. DEXTROSE [Concomitant]
     Active Substance: DEXTROSE
     Indication: Methylmalonic aciduria
     Dosage: 10% GLUCOSE 3 ML/KG/H
     Route: 042
  3. SODIUM BICARBONATE [Concomitant]
     Active Substance: SODIUM BICARBONATE
     Indication: Methylmalonic aciduria
     Dosage: 10 ML/H
  4. SODIUM BENZOATE [Concomitant]
     Active Substance: SODIUM BENZOATE
     Indication: Methylmalonic aciduria
  5. CARBAGLU [Concomitant]
     Active Substance: CARGLUMIC ACID
     Indication: Methylmalonic aciduria
  6. VITAMIN B12 [Concomitant]
     Active Substance: CYANOCOBALAMIN
     Indication: Methylmalonic aciduria
     Dosage: B-12 VITAMIN DAILY
  7. ARGININE [Concomitant]
     Active Substance: ARGININE
     Indication: Methylmalonic aciduria
  8. VITAMIN D3 [Concomitant]
     Active Substance: CHOLECALCIFEROL
     Indication: Methylmalonic aciduria
  9. HYDROXOCOBALAMIN [Concomitant]
     Active Substance: HYDROXOCOBALAMIN
     Indication: Methylmalonic aciduria
     Dosage: HYDROXOCOBALAMIN INJECTIONS IM TWICE?A WEEK.
     Route: 030
  10. HYDROXOCOBALAMIN [Concomitant]
     Active Substance: HYDROXOCOBALAMIN
     Indication: Methylmalonic aciduria
     Dosage: 1 MG/ML INJ 1 MG (IM) TWICE PER WEEK
     Route: 030
  11. LEVOCARNITINE [Suspect]
     Active Substance: LEVOCARNITINE
     Indication: Methylmalonic aciduria
     Dosage: 50 MG/KG/EVERY 6 H
  12. HYDROXOCOBALAMIN [Concomitant]
     Active Substance: HYDROXOCOBALAMIN
     Indication: Methylmalonic aciduria
     Dosage: 1 MG/0.7 ML
     Route: 030

REACTIONS (6)
  - Cardiac failure congestive [Fatal]
  - Therapy partial responder [Unknown]
  - Transient tachypnoea of the newborn [Unknown]
  - Hypotonia neonatal [Unknown]
  - Gross motor delay [Unknown]
  - Congestive cardiomyopathy [Unknown]
